FAERS Safety Report 6840311-3 (Version None)
Quarter: 2010Q2

REPORT INFORMATION
  Report Type: 
  Country: None (occurrence: None)
  Receive Date: 20100629
  Receipt Date: 20100308
  Transmission Date: 20101027
  Serious: Yes (Other)
  Sender: FDA-Public Use
  Company Number: US-WYE-H139656710

PATIENT

DRUGS (1)
  1. PRISTIQ [Suspect]

REACTIONS (3)
  - ABNORMAL FAECES [None]
  - FAECES DISCOLOURED [None]
  - MELAENA [None]
